FAERS Safety Report 5253564-2 (Version None)
Quarter: 2007Q1

REPORT INFORMATION
  Report Type: 
  Country: None (occurrence: None)
  Receive Date: 20061201
  Receipt Date: 20060808
  Transmission Date: 20070707
  Serious: No
  Sender: FDA-Public Use
  Company Number: 2006PV019055

PATIENT
  Age: 25 Year
  Sex: Female
  Weight: 60.3284 kg

DRUGS (11)
  1. BYETTA [Suspect]
     Indication: HYPOGLYCAEMIA
     Dosage: 5 MCG;BID;SC
     Route: 058
     Dates: start: 20060803
  2. BYETTA [Suspect]
     Indication: INSULIN RESISTANT DIABETES
     Dosage: 5 MCG;BID;SC
     Route: 058
     Dates: start: 20060803
  3. BYETTA [Suspect]
     Indication: POLYCYSTIC OVARIES
     Dosage: 5 MCG;BID;SC
     Route: 058
     Dates: start: 20060803
  4. BYETTA [Suspect]
     Indication: HYPOGLYCAEMIA
     Dosage: 5 MCG;BID;SC
     Route: 058
     Dates: start: 20060804
  5. BYETTA [Suspect]
     Indication: INSULIN RESISTANT DIABETES
     Dosage: 5 MCG;BID;SC
     Route: 058
     Dates: start: 20060804
  6. BYETTA [Suspect]
     Indication: POLYCYSTIC OVARIES
     Dosage: 5 MCG;BID;SC
     Route: 058
     Dates: start: 20060804
  7. GLUCOPHAGE [Concomitant]
  8. THYROID TAB [Concomitant]
  9. TOPAMAX [Concomitant]
  10. LEXAPRO [Concomitant]
  11. METFORMIN HCL [Concomitant]

REACTIONS (9)
  - ASTHENIA [None]
  - BLOOD GLUCOSE DECREASED [None]
  - COLD SWEAT [None]
  - CONFUSIONAL STATE [None]
  - DIZZINESS [None]
  - FATIGUE [None]
  - HEADACHE [None]
  - NAUSEA [None]
  - TREMOR [None]
